FAERS Safety Report 19088496 (Version 1)
Quarter: 2021Q2

REPORT INFORMATION
  Report Type: Report from Study
  Country: US (occurrence: US)
  Receive Date: 20210402
  Receipt Date: 20210402
  Transmission Date: 20210717
  Serious: Yes (Other)
  Sender: FDA-Public Use
  Company Number: US-JNJFOC-20210349470

PATIENT
  Sex: Male
  Weight: 88.6 kg

DRUGS (2)
  1. SELEXIPAG [Suspect]
     Active Substance: SELEXIPAG
     Indication: PULMONARY ARTERIAL HYPERTENSION
     Route: 048
  2. ELIQUIS [Concomitant]
     Active Substance: APIXABAN

REACTIONS (1)
  - Renal disorder [Unknown]
